FAERS Safety Report 7569321-8 (Version None)
Quarter: 2011Q2

REPORT INFORMATION
  Report Type: 
  Country: None (occurrence: None)
  Receive Date: 20110623
  Receipt Date: 20110616
  Transmission Date: 20111010
  Serious: Yes (Other)
  Sender: FDA-Public Use
  Company Number: NL-ABBOTT-10P-114-0633882-00

PATIENT
  Sex: Female
  Weight: 115 kg

DRUGS (9)
  1. CITALOPRAM HYDROBROMIDE [Concomitant]
     Indication: ANTIDEPRESSANT THERAPY
     Route: 048
  2. NEORAL [Concomitant]
     Route: 048
  3. LEUPROLIDE ACETATE [Suspect]
     Indication: BREAST CANCER
     Route: 058
     Dates: start: 20081027
  4. HYDROCHLOROTHIAZIDE [Concomitant]
     Indication: HYPERTENSION
     Route: 048
  5. FOLIC ACID [Concomitant]
     Indication: RHEUMATOID ARTHRITIS
     Route: 048
  6. METHOTREXATE [Concomitant]
     Indication: RHEUMATOID ARTHRITIS
     Route: 058
  7. TAMOXIFEN CITRATE [Concomitant]
     Indication: BREAST CANCER
     Route: 048
  8. NEORAL [Concomitant]
     Indication: RHEUMATOID ARTHRITIS
     Route: 048
  9. DOMPERIDON [Concomitant]
     Indication: PRODUCT USED FOR UNKNOWN INDICATION
     Route: 048

REACTIONS (6)
  - POLYP [None]
  - FEELING ABNORMAL [None]
  - MENORRHAGIA [None]
  - NAUSEA [None]
  - EMOTIONAL DISORDER [None]
  - WEIGHT INCREASED [None]
